FAERS Safety Report 10013524 (Version 2)
Quarter: 2014Q1

REPORT INFORMATION
  Report Type: Spontaneous
  Country: US (occurrence: US)
  Receive Date: 20140314
  Receipt Date: 20140314
  Transmission Date: 20141002
  Serious: Yes (Disabling)
  Sender: FDA-Public Use
  Company Number: US-GE HEALTHCARE MEDICAL DIAGNOSTICS-OSCN-PR-1006S-0155

PATIENT
  Age: 34 Year
  Sex: Male

DRUGS (9)
  1. OMNISCAN [Suspect]
     Indication: PRODUCT USED FOR UNKNOWN INDICATION
     Route: 042
     Dates: start: 20040524, end: 20040524
  2. GADOLINIUM (UNSPECIFIED) [Suspect]
     Indication: PRODUCT USED FOR UNKNOWN INDICATION
     Route: 042
     Dates: start: 20060309, end: 20060309
  3. OPTIMARK [Suspect]
     Indication: PRODUCT USED FOR UNKNOWN INDICATION
     Route: 042
     Dates: start: 20040127, end: 20040127
  4. OPTIMARK [Suspect]
     Route: 042
     Dates: start: 20040204, end: 20040204
  5. OPTIMARK [Suspect]
     Route: 042
     Dates: start: 20040325, end: 20040325
  6. OPTIMARK [Suspect]
     Route: 042
     Dates: start: 20040421, end: 20040421
  7. OPTIMARK [Suspect]
     Route: 042
     Dates: start: 20040916, end: 20040916
  8. OPTIMARK [Suspect]
     Route: 042
     Dates: start: 20041019, end: 20041019
  9. OPTIMARK [Suspect]
     Route: 042
     Dates: start: 20041124, end: 20041124

REACTIONS (1)
  - Nephrogenic systemic fibrosis [Not Recovered/Not Resolved]
